FAERS Safety Report 16329279 (Version 2)
Quarter: 2019Q2

REPORT INFORMATION
  Report Type: Spontaneous
  Country: NL (occurrence: NL)
  Receive Date: 20190520
  Receipt Date: 20190523
  Transmission Date: 20190711
  Serious: Yes (Other)
  Sender: FDA-Public Use
  Company Number: NL-LUPIN PHARMACEUTICALS INC.-2019-02967

PATIENT
  Age: 25 Year
  Sex: Female

DRUGS (5)
  1. TRAMADOL. [Suspect]
     Active Substance: TRAMADOL
     Indication: PEPTIC ULCER
     Dosage: UNK (STARTED INTERMITTENTLY ABOUT 3 YEARS AGO)
     Route: 065
     Dates: start: 2014
  2. TRAMADOL. [Suspect]
     Active Substance: TRAMADOL
     Dosage: 600 MILLIGRAM, QD (INCREASED)
     Route: 065
  3. TRAMADOL. [Suspect]
     Active Substance: TRAMADOL
     Dosage: 200 MILLIGRAM, QD (USED IT ALMOST ON DAILY BASIS)
     Route: 065
  4. TRAMADOL. [Suspect]
     Active Substance: TRAMADOL
     Dosage: 200 MILLIGRAM, QD
     Route: 065
  5. TRAMADOL. [Suspect]
     Active Substance: TRAMADOL
     Dosage: 800 MILLIGRAM, QD (USUALLY IN DIVIDED DOSES)
     Route: 065
     Dates: end: 2017

REACTIONS (7)
  - Drug dependence [Unknown]
  - Intentional product misuse [Unknown]
  - Impaired work ability [Recovered/Resolved]
  - Toxicity to various agents [Recovered/Resolved]
  - Intentional overdose [Unknown]
  - Dizziness [Recovered/Resolved]
  - Somnolence [Recovered/Resolved]

NARRATIVE: CASE EVENT DATE: 2017
